FAERS Safety Report 26058077 (Version 1)
Quarter: 2025Q4

REPORT INFORMATION
  Report Type: Spontaneous
  Country: US (occurrence: US)
  Receive Date: 20251118
  Receipt Date: 20251118
  Transmission Date: 20260118
  Serious: No
  Sender: DIFGEN PHARMACEUTICALS LLC
  Company Number: US-Difgen-012298

PATIENT
  Sex: Male

DRUGS (1)
  1. NICOTINE [Suspect]
     Active Substance: NICOTINE
     Indication: Parkinson^s disease
     Route: 062

REACTIONS (2)
  - Product use in unapproved indication [Unknown]
  - Product packaging quantity issue [Unknown]
